FAERS Safety Report 5655189-3 (Version None)
Quarter: 2008Q1

REPORT INFORMATION
  Report Type: 
  Country: None (occurrence: None)
  Receive Date: 20080307
  Receipt Date: 20080225
  Transmission Date: 20080703
  Serious: Yes (Life-Threatening, Hospitalization, Other)
  Sender: FDA-Public Use
  Company Number: FR-AMGEN-US257127

PATIENT
  Sex: Female

DRUGS (12)
  1. ENBREL [Suspect]
     Indication: RHEUMATOID ARTHRITIS
     Dosage: LYOPHILIZED (25 MG 2 TIMES WEEKLY)
     Route: 058
     Dates: start: 20040301, end: 20071001
  2. NOVATREX [Suspect]
     Indication: RHEUMATOID ARTHRITIS
     Dosage: UNKNOWN
     Route: 048
     Dates: start: 20030101, end: 20040301
  3. NOVATREX [Suspect]
     Route: 048
     Dates: start: 20040301
  4. NOVATREX [Suspect]
     Dosage: UNKNOWN; REDUCED DOSE
     Route: 048
     Dates: end: 20060101
  5. NOVATREX [Suspect]
     Dosage: UNKNOWN; THEN THE DOSE WAS PROGRESSIVELY INCREASED
     Route: 048
     Dates: start: 20060101, end: 20070901
  6. NOVATREX [Suspect]
     Route: 048
  7. CORTANCYL [Suspect]
     Indication: RHEUMATOID ARTHRITIS
     Route: 048
     Dates: start: 20040101, end: 20071128
  8. CORTANCYL [Suspect]
     Dosage: 20 MG TOTAL DAILY
     Route: 048
     Dates: start: 20071129
  9. MABTHERA [Suspect]
     Indication: RHEUMATOID ARTHRITIS
     Dosage: 1 G
     Route: 042
     Dates: start: 20071112, end: 20071112
  10. ARTOTEC [Concomitant]
     Route: 048
     Dates: end: 20071101
  11. ARTOTEC [Concomitant]
     Dosage: PROGRESSIVELY INCREASED AT 75 MG 3 TIMES DAILY
     Route: 048
     Dates: start: 20071101, end: 20071128
  12. ARTOTEC [Concomitant]
     Dosage: NO MORE THAN 150 MG TOTAL DAILY; IF NEEDED
     Route: 048
     Dates: start: 20071129

REACTIONS (9)
  - ASPERGILLOMA [None]
  - CONDITION AGGRAVATED [None]
  - DRUG EFFECT DECREASED [None]
  - GENERAL PHYSICAL HEALTH DETERIORATION [None]
  - INFECTION [None]
  - INFLAMMATION [None]
  - JOINT DESTRUCTION [None]
  - RHEUMATOID ARTHRITIS [None]
  - SINUSITIS ASPERGILLUS [None]
